FAERS Safety Report 24296067 (Version 3)
Quarter: 2025Q3

REPORT INFORMATION
  Report Type: Spontaneous
  Country: US (occurrence: US)
  Receive Date: 20240909
  Receipt Date: 20250810
  Transmission Date: 20251021
  Serious: No
  Sender: ALEXION PHARMACEUTICALS
  Company Number: 2024A194901

PATIENT
  Sex: Female

DRUGS (3)
  1. BREZTRI [Suspect]
     Active Substance: BUDESONIDE\FORMOTEROL\GLYCOPYRROLATE
     Dosage: 160 MICROGRAM, BID
  2. DALIRESP [Suspect]
     Active Substance: ROFLUMILAST
  3. DALIRESP [Concomitant]
     Active Substance: ROFLUMILAST

REACTIONS (9)
  - COVID-19 [Unknown]
  - Condition aggravated [Unknown]
  - Memory impairment [Unknown]
  - Overdose [Unknown]
  - Incorrect dose administered by device [Unknown]
  - Drug dose omission by device [Unknown]
  - Wrong technique in device usage process [Unknown]
  - Product use issue [Unknown]
  - Device delivery system issue [Unknown]
